FAERS Safety Report 11636784 (Version 1)
Quarter: 2015Q4

REPORT INFORMATION
  Report Type: Spontaneous
  Country: US (occurrence: US)
  Receive Date: 20151016
  Receipt Date: 20151016
  Transmission Date: 20160304
  Serious: No
  Sender: FDA-Public Use
  Company Number: US-GALDERMA-US15007079

PATIENT
  Age: 40 Year
  Sex: Male

DRUGS (2)
  1. METROGEL [Suspect]
     Active Substance: METRONIDAZOLE
     Indication: ROSACEA
     Route: 061
  2. SOOLANTRA [Suspect]
     Active Substance: IVERMECTIN
     Indication: ROSACEA
     Dosage: 1%
     Route: 061

REACTIONS (3)
  - Rash erythematous [Recovered/Resolved]
  - Adverse drug reaction [Unknown]
  - Rosacea [Recovered/Resolved]

NARRATIVE: CASE EVENT DATE: 201507
